FAERS Safety Report 8978997 (Version 1)
Quarter: 2012Q4

REPORT INFORMATION
  Report Type: 
  Country: JP (occurrence: JP)
  Receive Date: 20121220
  Receipt Date: 20121220
  Transmission Date: 20130627
  Serious: Yes (Hospitalization)
  Sender: FDA-Public Use
  Company Number: JP-MYLANLABS-2012S1025466

PATIENT
  Age: 49 Year
  Sex: Female

DRUGS (5)
  1. LANSOPRAZOLE [Suspect]
     Indication: GASTROOESOPHAGEAL REFLUX DISEASE
     Route: 065
  2. CIMETIDINE [Concomitant]
     Indication: GASTROOESOPHAGEAL REFLUX DISEASE
     Route: 065
  3. GLYCYRRHIZA [Concomitant]
     Indication: HEPATIC FUNCTION ABNORMAL
     Route: 065
  4. URSODEOXYCHOLIC ACID [Concomitant]
     Indication: HEPATIC FUNCTION ABNORMAL
     Route: 065
  5. POTASSIUM CHLORIDE [Concomitant]
     Indication: BLOOD POTASSIUM DECREASED
     Dosage: 1800mg
     Route: 065

REACTIONS (3)
  - Renal tubular acidosis [Recovering/Resolving]
  - Condition aggravated [Recovering/Resolving]
  - Metabolic acidosis [Recovered/Resolved]
